FAERS Safety Report 5868382-1 (Version None)
Quarter: 2008Q3

REPORT INFORMATION
  Report Type: 
  Country: None (occurrence: None)
  Receive Date: 20080902
  Receipt Date: 20080902
  Transmission Date: 20090109
  Serious: Yes (Life-Threatening)
  Sender: FDA-Public Use
  Company Number: None

PATIENT
  Age: 44 Year
  Sex: Female
  Weight: 172.3669 kg

DRUGS (2)
  1. DICLOFENAC SODIUM [Suspect]
     Indication: OSTEOARTHRITIS
     Dosage: ONE TID PO
     Route: 048
     Dates: start: 20080825, end: 20080825
  2. DICLOFENAC SODIUM [Suspect]
     Indication: OSTEOARTHRITIS
     Dosage: ONE TID PO
     Route: 048
     Dates: start: 20080830, end: 20080830

REACTIONS (2)
  - REACTION TO DRUG EXCIPIENTS [None]
  - URTICARIA [None]
